FAERS Safety Report 8987108 (Version 1)
Quarter: 2012Q4

REPORT INFORMATION
  Report Type: 
  Country: BR (occurrence: BR)
  Receive Date: 20121226
  Receipt Date: 20121226
  Transmission Date: 20130627
  Serious: Yes (Hospitalization)
  Sender: FDA-Public Use
  Company Number: BR-ALLERGAN-1217398US

PATIENT
  Age: 3 Year

DRUGS (1)
  1. BOTOX� [Suspect]
     Indication: SPASTICITY
     Dosage: UNK
     Dates: start: 20121201, end: 20121201

REACTIONS (2)
  - Hypotonia [Unknown]
  - Eyelid ptosis [Unknown]
